FAERS Safety Report 4793427-X (Version None)
Quarter: 2005Q4

REPORT INFORMATION
  Report Type: 
  Country: None (occurrence: None)
  Receive Date: 20051011
  Receipt Date: 20031230
  Transmission Date: 20060501
  Serious: No
  Sender: FDA-Public Use
  Company Number: US-BRISTOL-MYERS SQUIBB COMPANY-12466769

PATIENT
  Age: 68 Year
  Sex: Male
  Weight: 118 kg

DRUGS (5)
  1. GLUCOPHAGE XR [Suspect]
     Indication: DIABETES MELLITUS
     Dosage: DOSE REGIMEN:  1500 MILLIGRAMS IN THE MORNING AND 1000 MILLIGRAMS IN THE EVENING.
     Route: 048
     Dates: end: 20010101
  2. HYZAAR [Concomitant]
  3. BUSPAR [Concomitant]
  4. AVANDIA [Concomitant]
  5. VIOXX [Concomitant]

REACTIONS (5)
  - BLOOD GLUCOSE INCREASED [None]
  - DIZZINESS [None]
  - GAIT DISTURBANCE [None]
  - THIRST [None]
  - VISION BLURRED [None]
